FAERS Safety Report 8819179 (Version 1)
Quarter: 2012Q4

REPORT INFORMATION
  Report Type: 
  Country: US (occurrence: US)
  Receive Date: 20121002
  Receipt Date: 20121002
  Transmission Date: 20130627
  Serious: No
  Sender: FDA-Public Use
  Company Number: US-PFIZER INC-2012239617

PATIENT
  Sex: Female

DRUGS (2)
  1. SONATA [Suspect]
     Indication: SLEEP DISORDER
     Dosage: 1 DF (1 dose), UNK
  2. SONATA [Suspect]
     Dosage: 2DF (40 mg above the maximum), UNK

REACTIONS (2)
  - Drug ineffective [Unknown]
  - Overdose [Unknown]
